FAERS Safety Report 6231326-7 (Version None)
Quarter: 2009Q2

REPORT INFORMATION
  Report Type: 
  Country: None (occurrence: None)
  Receive Date: 20090616
  Receipt Date: 20090505
  Transmission Date: 20091009
  Serious: Yes (Other)
  Sender: FDA-Public Use
  Company Number: IT-SANOFI-SYNTHELABO-A06200900298

PATIENT
  Age: 0 Day
  Sex: Male

DRUGS (8)
  1. HEPARIN [Suspect]
     Indication: PROPHYLAXIS
     Dosage: UNK
     Route: 064
  2. HEPARIN [Suspect]
     Indication: DRUG EXPOSURE DURING PREGNANCY
     Dosage: UNK
     Route: 064
  3. ASPIRIN [Suspect]
     Indication: CONNECTIVE TISSUE DISORDER
     Route: 064
  4. ASPIRIN [Suspect]
     Indication: DRUG EXPOSURE DURING PREGNANCY
     Route: 064
  5. FOLIC ACID [Suspect]
     Indication: CONNECTIVE TISSUE DISORDER
     Dosage: UNK
     Route: 064
  6. FOLIC ACID [Suspect]
     Indication: DRUG EXPOSURE DURING PREGNANCY
     Dosage: UNK
     Route: 064
  7. HYDROXYCHLOROQUINE SULFATE [Suspect]
     Indication: CONNECTIVE TISSUE DISORDER
     Route: 064
  8. HYDROXYCHLOROQUINE SULFATE [Suspect]
     Indication: DRUG EXPOSURE DURING PREGNANCY
     Route: 064

REACTIONS (2)
  - CONGENITAL PYELOCALIECTASIS [None]
  - DRUG EXPOSURE DURING PREGNANCY [None]
